FAERS Safety Report 7014785-1 (Version None)
Quarter: 2010Q3

REPORT INFORMATION
  Report Type: 
  Country: None (occurrence: None)
  Receive Date: 20100927
  Receipt Date: 20100915
  Transmission Date: 20110219
  Serious: Yes (Hospitalization)
  Sender: FDA-Public Use
  Company Number: PHHY2010JP56155

PATIENT
  Sex: Female
  Weight: 65 kg

DRUGS (5)
  1. CO-DIOVAN T32564+FCTAB [Suspect]
     Indication: HYPERTENSION
     Dosage: 1 DF, QD
     Route: 048
     Dates: start: 20100716
  2. AZELASTINE HCL [Suspect]
     Indication: HYPERTENSION
     Dosage: 16MG, DAILY
     Route: 048
     Dates: start: 20080101
  3. FOSAMAX [Suspect]
     Indication: OSTEOPOROSIS
     Dosage: 35 MG DAILY
     Route: 048
     Dates: start: 20090313
  4. GASTER D [Suspect]
     Indication: GASTRITIS
     Dosage: 20MG, DAILY
     Route: 048
     Dates: start: 20091009
  5. ASPIRIN [Suspect]
     Indication: THROMBOSIS PROPHYLAXIS
     Dosage: 1 DF, QD
     Route: 048
     Dates: start: 20100617

REACTIONS (5)
  - CEREBRAL INFARCTION [None]
  - DYSLALIA [None]
  - HEMIPLEGIA [None]
  - HYPOKINESIA [None]
  - VIITH NERVE PARALYSIS [None]
